FAERS Safety Report 4386152-0 (Version None)
Quarter: 2004Q2

REPORT INFORMATION
  Report Type: 
  Country: None (occurrence: None)
  Receive Date: 20040628
  Receipt Date: 20040628
  Transmission Date: 20050107
  Serious: Yes (Other)
  Sender: FDA-Public Use
  Company Number: None

PATIENT
  Sex: Male
  Weight: 71.6683 kg

DRUGS (2)
  1. DOXAZOSIN STD [Suspect]
     Indication: HYPERTENSION
     Dosage: DAILY
  2. ATENOLOL [Concomitant]

REACTIONS (3)
  - NERVOUS SYSTEM DISORDER [None]
  - SLEEP DISORDER [None]
  - TREMOR [None]
